FAERS Safety Report 15211685 (Version 1)
Quarter: 2018Q3

REPORT INFORMATION
  Report Type: Spontaneous
  Country: GB (occurrence: GB)
  Receive Date: 20180729
  Receipt Date: 20180729
  Transmission Date: 20181010
  Serious: Yes (Other)
  Sender: FDA-Public Use
  Company Number: PHHY2018GB055904

PATIENT
  Age: 5 Year
  Sex: Male
  Weight: 14.5 kg

DRUGS (3)
  1. PARACETAMOL [Suspect]
     Active Substance: ACETAMINOPHEN
     Indication: POSTOPERATIVE CARE
     Dosage: 1 DF, (APPROXIMATELY 1 HOUR APART   )
     Route: 054
     Dates: start: 20180511
  2. IBUPROFEN. [Suspect]
     Active Substance: IBUPROFEN
     Indication: POSTOPERATIVE CARE
     Dosage: 1 DF, (APPROXIMATELY 1 HOUR APART)
     Route: 054
     Dates: start: 20180511
  3. ORAMORPH [Concomitant]
     Active Substance: MORPHINE SULFATE
     Indication: PRODUCT USED FOR UNKNOWN INDICATION
     Route: 065

REACTIONS (8)
  - Perianal erythema [Recovering/Resolving]
  - Condition aggravated [Unknown]
  - Anal pruritus [Not Recovered/Not Resolved]
  - Abdominal pain lower [Unknown]
  - Skin tightness [Recovering/Resolving]
  - Anorectal discomfort [Unknown]
  - Eye swelling [Unknown]
  - Rectal haemorrhage [Recovered/Resolved]

NARRATIVE: CASE EVENT DATE: 20180511
